FAERS Safety Report 4627728-2 (Version None)
Quarter: 2005Q2

REPORT INFORMATION
  Report Type: 
  Country: None (occurrence: None)
  Receive Date: 20050401
  Receipt Date: 20021107
  Transmission Date: 20051028
  Serious: Yes (Life-Threatening)
  Sender: FDA-Public Use
  Company Number: 4531

PATIENT
  Age: 66 Year
  Sex: Male

DRUGS (5)
  1. CYTARABINE [Suspect]
     Indication: ACUTE MYELOID LEUKAEMIA
  2. IDARUBICIN HCL [Concomitant]
  3. FLUCONAZOLE [Concomitant]
  4. ACYCLOVIR [Concomitant]
  5. ALLOPURINOL [Concomitant]

REACTIONS (6)
  - CHEST WALL PAIN [None]
  - MALAISE [None]
  - MYALGIA [None]
  - PANCYTOPENIA [None]
  - PYREXIA [None]
  - RASH ERYTHEMATOUS [None]
